FAERS Safety Report 7048959-0 (Version None)
Quarter: 2010Q4

REPORT INFORMATION
  Report Type: 
  Country: None (occurrence: None)
  Receive Date: 20101008
  Receipt Date: 20100924
  Transmission Date: 20110411
  Serious: Yes (Death)
  Sender: FDA-Public Use
  Company Number: COL_02366_2010

PATIENT
  Age: 27 Year
  Sex: Female

DRUGS (1)
  1. LADY SPEEDSTICK ANTIPERSPIRANT UNSPECIFIED [Suspect]
     Indication: APPLICATION SITE PERSPIRATION
     Dosage: (2X/ TOPICAL)
     Route: 061
     Dates: start: 20100824, end: 20100824

REACTIONS (3)
  - APPLICATION SITE BLEEDING [None]
  - HAEMORRHAGE [None]
  - SKIN DISORDER [None]
